FAERS Safety Report 9713840 (Version 1)
Quarter: 2013Q4

REPORT INFORMATION
  Report Type: Spontaneous
  Country: US (occurrence: US)
  Receive Date: 20131126
  Receipt Date: 20131126
  Transmission Date: 20140711
  Serious: Yes (Death)
  Sender: FDA-Public Use
  Company Number: US-GLAXOSMITHKLINE-A1050617A

PATIENT
  Age: 64 Year
  Sex: Male

DRUGS (4)
  1. ADVAIR [Suspect]
     Indication: PRODUCT USED FOR UNKNOWN INDICATION
     Dosage: 1PUFF TWICE PER DAY
     Route: 055
     Dates: start: 2007, end: 2013
  2. SPIRIVA [Concomitant]
  3. CLOPIDOGREL [Concomitant]
  4. LIPITOR [Concomitant]

REACTIONS (1)
  - Death [Fatal]
